FAERS Safety Report 19005581 (Version 1)
Quarter: 2021Q1

REPORT INFORMATION
  Report Type: Spontaneous
  Country: DE (occurrence: DE)
  Receive Date: 20210313
  Receipt Date: 20210313
  Transmission Date: 20210420
  Serious: Yes (Death, Hospitalization, Other)
  Sender: FDA-Public Use
  Company Number: DE-JNJFOC-20190900830

PATIENT
  Age: 73 Year
  Sex: Female
  Weight: 64 kg

DRUGS (24)
  1. CLONT                              /00012501/ [Suspect]
     Active Substance: METRONIDAZOLE
     Route: 048
     Dates: start: 20010415, end: 20010426
  2. SOLU?DECORTIN?H [Suspect]
     Active Substance: PREDNISOLONE SODIUM SUCCINATE
     Indication: PRURITUS
     Route: 042
     Dates: start: 20010511, end: 20010511
  3. CIPROBAY                           /00697201/ [Suspect]
     Active Substance: CIPROFLOXACIN
     Indication: CHOLANGITIS
     Route: 042
     Dates: start: 20010426, end: 20010501
  4. CARBIMAZOLE [Suspect]
     Active Substance: CARBIMAZOLE
     Indication: HYPERTHYROIDISM
     Route: 048
  5. ALDACTONE [Suspect]
     Active Substance: SPIRONOLACTONE
     Indication: OEDEMA
     Route: 048
     Dates: start: 20010415, end: 20010425
  6. GLUCOSE [Suspect]
     Active Substance: DEXTROSE
     Indication: PARENTERAL NUTRITION
     Route: 042
     Dates: start: 20010415, end: 20010505
  7. JONOSTERIL                         /00351401/ [Concomitant]
     Active Substance: CALCIUM ACETATE\MAGNESIUM ACETATE\POTASSIUM ACETATE\SODIUM ACETATE\SODIUM CHLORI
     Route: 042
     Dates: start: 20010415, end: 20010505
  8. SODIUM CHLORIDE. [Concomitant]
     Active Substance: SODIUM CHLORIDE
     Dosage: 100 ML, SINGLE
     Route: 042
     Dates: start: 20010508, end: 20010508
  9. AMINOMIX                           /03395601/ [Suspect]
     Active Substance: AMINO ACIDS\DEXTROSE\ELECTROLYTES NOS
     Indication: PARENTERAL NUTRITION
     Dosage: 500 ML/DAY
     Route: 042
     Dates: start: 20010415, end: 20010427
  10. ETILEFRINE [Suspect]
     Active Substance: ETILEFRINE
     Indication: HYPOTENSION
     Route: 048
     Dates: start: 20010508, end: 20010508
  11. KALIUMKLORID [Concomitant]
     Indication: HYPOKALAEMIA
     Route: 042
     Dates: start: 20010426, end: 20010501
  12. VOMEX A [Suspect]
     Active Substance: DIMENHYDRINATE
     Indication: NAUSEA
     Route: 042
     Dates: start: 20010508, end: 20010508
  13. MCP                                /00041902/ [Suspect]
     Active Substance: METOCLOPRAMIDE HYDROCHLORIDE
     Indication: NAUSEA
     Route: 042
     Dates: start: 20010508, end: 20010508
  14. INSULIN PROTAPHAN HUMAN [Suspect]
     Active Substance: INSULIN HUMAN
     Indication: DIABETES MELLITUS
     Dosage: 16IU?12IU?8IU
     Route: 058
     Dates: start: 20010415, end: 20010426
  15. CLONT                              /00012501/ [Suspect]
     Active Substance: METRONIDAZOLE
     Indication: CHOLANGITIS
     Route: 042
     Dates: start: 20010426, end: 20010501
  16. PANTOZOL [Suspect]
     Active Substance: PANTOPRAZOLE SODIUM
     Indication: PROPHYLAXIS
     Route: 048
     Dates: start: 20010506
  17. FORTRAL                            /00052101/ [Suspect]
     Active Substance: PENTAZOCINE
     Indication: PAIN
     Route: 042
     Dates: start: 20010508, end: 20010508
  18. IMODIUM [Suspect]
     Active Substance: LOPERAMIDE HYDROCHLORIDE
     Indication: DIARRHOEA
     Dosage: 1 DF, SINGLE
     Route: 048
     Dates: start: 20010430, end: 20010430
  19. POTASSIUM CHLORIDE. [Suspect]
     Active Substance: POTASSIUM CHLORIDE
     Indication: HYPOKALAEMIA
     Route: 048
     Dates: start: 20010506
  20. ANTRA                              /00661201/ [Suspect]
     Active Substance: OMEPRAZOLE
     Indication: PROPHYLAXIS
     Route: 042
     Dates: start: 20010426, end: 20010505
  21. CHOLSPASMIN                        /00512501/ [Suspect]
     Active Substance: HYMECROMONE
     Route: 042
     Dates: start: 20010510
  22. BAYPEN [Suspect]
     Active Substance: MEZLOCILLIN SODIUM
     Indication: CHOLANGITIS
     Route: 042
     Dates: start: 20010428, end: 20010501
  23. CIPROBAY                           /00697201/ [Suspect]
     Active Substance: CIPROFLOXACIN
     Route: 048
     Dates: start: 20010415, end: 20010426
  24. PANTOZOL [Suspect]
     Active Substance: PANTOPRAZOLE SODIUM
     Route: 048
     Dates: start: 20010415, end: 20010426

REACTIONS (11)
  - Stevens-Johnson syndrome [Fatal]
  - Blister [Unknown]
  - Skin lesion [Unknown]
  - Pruritus [Unknown]
  - Lip erosion [Unknown]
  - Circulatory collapse [Fatal]
  - Cardiac arrest [Fatal]
  - Conjunctivitis [Unknown]
  - Rash [Unknown]
  - Toxic epidermal necrolysis [Fatal]
  - Skin exfoliation [Unknown]

NARRATIVE: CASE EVENT DATE: 20010511
